FAERS Safety Report 10405937 (Version 2)
Quarter: 2014Q3

REPORT INFORMATION
  Report Type: Spontaneous
  Country: US (occurrence: US)
  Receive Date: 20140825
  Receipt Date: 20140825
  Transmission Date: 20150326
  Serious: No
  Sender: FDA-Public Use
  Company Number: US-ELI_LILLY_AND_COMPANY-US201405005197

PATIENT
  Age: 52 Year
  Sex: Female

DRUGS (8)
  1. BETAMETHASONE [Concomitant]
     Active Substance: BETAMETHASONE
  2. FORTEO [Suspect]
     Active Substance: TERIPARATIDE
     Indication: OSTEOPOROSIS
     Dosage: 20 UG, UNK
     Route: 065
     Dates: start: 201404, end: 201405
  3. ABILIFY [Concomitant]
     Active Substance: ARIPIPRAZOLE
  4. VITAMIN D                          /00107901/ [Concomitant]
     Active Substance: ERGOCALCIFEROL
  5. PREDNISONE. [Concomitant]
     Active Substance: PREDNISONE
  6. CONCERTA [Concomitant]
     Active Substance: METHYLPHENIDATE HYDROCHLORIDE
  7. FORTEO [Suspect]
     Active Substance: TERIPARATIDE
     Dosage: 20 UG, UNK
     Route: 065
     Dates: start: 2014
  8. FLORASTOR [Concomitant]
     Active Substance: SACCHAROMYCES CEREVISIAE

REACTIONS (2)
  - Localised oedema [Recovered/Resolved]
  - Oedema peripheral [Recovered/Resolved]

NARRATIVE: CASE EVENT DATE: 2014
